FAERS Safety Report 16176506 (Version 4)
Quarter: 2019Q3

REPORT INFORMATION
  Report Type: Spontaneous
  Country: AU (occurrence: AU)
  Receive Date: 20190409
  Receipt Date: 20190815
  Transmission Date: 20191004
  Serious: Yes (Death, Hospitalization, Other)
  Sender: FDA-Public Use
  Company Number: AU-PFIZER INC-2019147615

PATIENT
  Age: 88 Year
  Sex: Female
  Weight: 50 kg

DRUGS (10)
  1. PREDNISONE. [Concomitant]
     Active Substance: PREDNISONE
     Indication: RASH PRURITIC
     Dosage: 25 MG, UNK
  2. PINETARSOL [COAL TAR;TROLAMINE LAURYLSULFATE] [Concomitant]
     Indication: RASH PRURITIC
  3. CYPROHEPTADINE. [Concomitant]
     Active Substance: CYPROHEPTADINE
     Indication: RASH PRURITIC
     Dosage: 4 MG, 1X/DAY
  4. PERIACTIN [Concomitant]
     Active Substance: CYPROHEPTADINE HYDROCHLORIDE
     Indication: RASH PRURITIC
     Dosage: 4 MG, UNK
     Route: 048
  5. CALAMINE [Concomitant]
     Active Substance: CALAMINE\FERRIC OXIDE RED\ZINC OXIDE
     Indication: RASH PRURITIC
     Dosage: UNK
  6. CLINDAMYCIN HCL [Suspect]
     Active Substance: CLINDAMYCIN HYDROCHLORIDE
     Indication: INFECTION
     Dosage: 10 MG, 2X/DAY
     Route: 048
     Dates: start: 20190131, end: 20190208
  7. CORTISONE [Concomitant]
     Active Substance: CORTISONE
     Indication: RASH PRURITIC
  8. ELEUPHRAT [Concomitant]
     Active Substance: BETAMETHASONE DIPROPIONATE
     Indication: RASH PRURITIC
  9. SORBOLENE [Concomitant]
     Indication: RASH PRURITIC
     Dosage: UNK
  10. LORATADINE. [Concomitant]
     Active Substance: LORATADINE
     Indication: RASH PRURITIC
     Dosage: 10 MG, 2X/DAY

REACTIONS (8)
  - Off label use [Unknown]
  - Clostridium difficile infection [Fatal]
  - Diarrhoea [Fatal]
  - Colitis [Fatal]
  - Cardiac arrest [Fatal]
  - Pneumonia aspiration [Fatal]
  - Abdominal distension [Unknown]
  - Product use issue [Unknown]

NARRATIVE: CASE EVENT DATE: 20190131
